FAERS Safety Report 10651897 (Version 3)
Quarter: 2015Q1

REPORT INFORMATION
  Report Type: Spontaneous
  Country: GB (occurrence: GB)
  Receive Date: 20141215
  Receipt Date: 20150302
  Transmission Date: 20150720
  Serious: Yes (Hospitalization, Other)
  Sender: FDA-Public Use
  Company Number: PHFR2014GB007789

PATIENT
  Age: 41 Year
  Sex: Male

DRUGS (5)
  1. CLOZARIL [Suspect]
     Active Substance: CLOZAPINE
     Indication: SCHIZOPHRENIA
     Dosage: UNK
     Route: 048
     Dates: start: 20070223
  2. CLOZARIL [Suspect]
     Active Substance: CLOZAPINE
     Dosage: REDUCED DOSE
     Route: 048
  3. OMEPRAZOLE. [Concomitant]
     Active Substance: OMEPRAZOLE
     Indication: PRODUCT USED FOR UNKNOWN INDICATION
     Dosage: UNK
     Route: 065
  4. FUROSEMIDE. [Concomitant]
     Active Substance: FUROSEMIDE
     Indication: PRODUCT USED FOR UNKNOWN INDICATION
     Dosage: UNK
     Route: 065
  5. CLOZARIL [Suspect]
     Active Substance: CLOZAPINE
     Dosage: 200 MG, QD (50 MG MORNING AND 150 MG NIGHT)
     Route: 048

REACTIONS (7)
  - Abdominal pain [Not Recovered/Not Resolved]
  - Loss of consciousness [Recovered/Resolved]
  - Platelet count decreased [Not Recovered/Not Resolved]
  - Colitis [Recovered/Resolved]
  - Antipsychotic drug level above therapeutic [Unknown]
  - Diarrhoea [Not Recovered/Not Resolved]
  - Lower respiratory tract infection [Recovered/Resolved]

NARRATIVE: CASE EVENT DATE: 20140325
